FAERS Safety Report 5802705-4 (Version None)
Quarter: 2008Q2

REPORT INFORMATION
  Report Type: 
  Country: None (occurrence: None)
  Receive Date: 20080627
  Receipt Date: 20070831
  Transmission Date: 20081010
  Serious: Yes (Other)
  Sender: FDA-Public Use
  Company Number: 2007-04048

PATIENT
  Age: 46 Year
  Sex: Female
  Weight: 62.1 kg

DRUGS (1)
  1. INFED [Suspect]
     Dosage: 0.5 ML, SINGLE, TEST DOSE, INTRAVENOUS
     Route: 042
     Dates: start: 20070831, end: 20070831

REACTIONS (5)
  - ANAPHYLACTIC REACTION [None]
  - DYSPHAGIA [None]
  - FLUSHING [None]
  - LIP SWELLING [None]
  - PHARYNGEAL OEDEMA [None]
